FAERS Safety Report 5005891-1 (Version None)
Quarter: 2006Q2

REPORT INFORMATION
  Report Type: 
  Country: None (occurrence: None)
  Receive Date: 20060517
  Receipt Date: 20060517
  Transmission Date: 20061013
  Serious: Yes (Hospitalization)
  Sender: FDA-Public Use
  Company Number: None

PATIENT
  Age: 89 Year
  Sex: Male

DRUGS (7)
  1. WARFARIN SODIUM [Suspect]
     Indication: ATRIAL FIBRILLATION
     Dosage: 5 MG QD
     Dates: start: 20041201
  2. BUMETANIDE [Suspect]
     Indication: HYPERTENSION
     Dosage: 0.5 MG QD
     Dates: start: 20041201
  3. TOPIRAMATE [Suspect]
     Indication: TREMOR
     Dosage: 75 MG BID
     Dates: start: 20050701
  4. DIGOXIN [Concomitant]
  5. GATIFLOXACIN [Concomitant]
  6. ZOCOR [Concomitant]
  7. METOPROLOL TARTRATE [Concomitant]

REACTIONS (1)
  - METABOLIC ACIDOSIS [None]
